FAERS Safety Report 24095907 (Version 3)
Quarter: 2025Q1

REPORT INFORMATION
  Report Type: Spontaneous
  Country: US (occurrence: US)
  Receive Date: 20240716
  Receipt Date: 20250310
  Transmission Date: 20250408
  Serious: No
  Sender: SANOFI AVENTIS
  Company Number: US-SA-SAC20240709000341

PATIENT
  Age: 54 Year
  Sex: Male

DRUGS (11)
  1. DUPIXENT [Suspect]
     Active Substance: DUPILUMAB
     Indication: Nasal polyps
     Dosage: 300 MG, QOW
     Route: 058
     Dates: start: 202406
  2. ALLOPURINOL [Concomitant]
     Active Substance: ALLOPURINOL
  3. EPIPEN [Concomitant]
     Active Substance: EPINEPHRINE
  4. FLUTICASONE [Concomitant]
     Active Substance: FLUTICASONE
  5. METFORMIN HYDROCHLORIDE [Concomitant]
     Active Substance: METFORMIN HYDROCHLORIDE
  6. METOPROLOL SUCCINATE [Concomitant]
     Active Substance: METOPROLOL SUCCINATE
  7. POTASSIUM CHLORIDE [Concomitant]
     Active Substance: POTASSIUM CHLORIDE
  8. SPIRIVA [Concomitant]
     Active Substance: TIOTROPIUM BROMIDE MONOHYDRATE
  9. SYMBICORT [Concomitant]
     Active Substance: BUDESONIDE\FORMOTEROL FUMARATE DIHYDRATE
  10. TORSEMIDE [Concomitant]
     Active Substance: TORSEMIDE
  11. VENTOLIN HFA [Concomitant]
     Active Substance: ALBUTEROL SULFATE

REACTIONS (4)
  - Sleep disorder due to a general medical condition [Not Recovered/Not Resolved]
  - Dyspnoea [Not Recovered/Not Resolved]
  - Respiratory fatigue [Not Recovered/Not Resolved]
  - Loss of personal independence in daily activities [Not Recovered/Not Resolved]

NARRATIVE: CASE EVENT DATE: 20240101
